FAERS Safety Report 24592642 (Version 1)
Quarter: 2024Q4

REPORT INFORMATION
  Report Type: Spontaneous
  Country: US (occurrence: US)
  Receive Date: 20241108
  Receipt Date: 20241108
  Transmission Date: 20250115
  Serious: No
  Sender: Haleon PLC
  Company Number: US-HALEON-2207493

PATIENT
  Age: 77 Year

DRUGS (1)
  1. EXCEDRIN EXTRA STRENGTH [Suspect]
     Active Substance: ACETAMINOPHEN\ASPIRIN\CAFFEINE
     Indication: Headache
     Dosage: EXPDATE:20261206

REACTIONS (3)
  - Inappropriate schedule of product administration [Unknown]
  - Drug effect less than expected [Unknown]
  - Product use issue [Unknown]
